FAERS Safety Report 17118112 (Version 2)
Quarter: 2023Q1

REPORT INFORMATION
  Report Type: Spontaneous
  Country: CZ (occurrence: CZ)
  Receive Date: 20191205
  Receipt Date: 20230223
  Transmission Date: 20230417
  Serious: Yes (Other)
  Sender: FDA-Public Use
  Company Number: CZ-ACCORD-138519

PATIENT
  Age: 67 Year
  Sex: Male

DRUGS (6)
  1. IRINOTECAN [Suspect]
     Active Substance: IRINOTECAN
     Indication: Colorectal cancer metastatic
     Dosage: UNK
     Route: 065
     Dates: start: 201802
  2. OXALIPLATIN [Suspect]
     Active Substance: OXALIPLATIN
     Indication: Colorectal cancer metastatic
     Dosage: UNK, CYCLE 7,10,11
     Route: 065
     Dates: start: 201510
  3. FLUOROURACIL [Suspect]
     Active Substance: FLUOROURACIL
     Indication: Colorectal cancer metastatic
     Dosage: UNK, CYCLE 7, 10, 11
     Route: 065
     Dates: start: 201510
  4. AFLIBERCEPT [Suspect]
     Active Substance: AFLIBERCEPT
     Indication: Colorectal cancer metastatic
     Dosage: UNK
     Route: 065
     Dates: start: 201802
  5. PANITUMUMAB [Suspect]
     Active Substance: PANITUMUMAB
     Indication: Colorectal cancer metastatic
     Dosage: UNK, CYCLE 7,1,11
     Route: 065
     Dates: start: 201510
  6. LEUCOVORIN [Suspect]
     Active Substance: LEUCOVORIN
     Indication: Colorectal cancer metastatic
     Dosage: UNK, CYCLE 7,10,11
     Route: 065
     Dates: start: 201510

REACTIONS (4)
  - Skin toxicity [Unknown]
  - Neuropathy peripheral [Unknown]
  - Proteinuria [Unknown]
  - Hypertension [Unknown]
